FAERS Safety Report 25346820 (Version 1)
Quarter: 2025Q2

REPORT INFORMATION
  Report Type: Spontaneous
  Country: US (occurrence: US)
  Receive Date: 20250522
  Receipt Date: 20250522
  Transmission Date: 20250716
  Serious: No
  Sender: BAYER HEALTHCARE LLC
  Company Number: US-BAYER-2025A068797

PATIENT
  Age: 66 Year
  Sex: Male

DRUGS (1)
  1. CLARITIN LIQUI-GELS [Suspect]
     Active Substance: LORATADINE
     Indication: Hypersensitivity
     Route: 048
     Dates: start: 20250520, end: 20250520

REACTIONS (3)
  - Poor quality sleep [Unknown]
  - Muscle spasms [Not Recovered/Not Resolved]
  - Muscular weakness [Unknown]
